FAERS Safety Report 6449045-0 (Version None)
Quarter: 2009Q4

REPORT INFORMATION
  Report Type: 
  Country: None (occurrence: None)
  Receive Date: 20091120
  Receipt Date: 20091109
  Transmission Date: 20100525
  Serious: Yes (Death)
  Sender: FDA-Public Use
  Company Number: GB-JNJFOC-20090905153

PATIENT
  Age: 62 Year
  Sex: Male
  Weight: 89 kg

DRUGS (6)
  1. INFLIXIMAB [Suspect]
     Indication: RHEUMATOID ARTHRITIS
     Route: 042
     Dates: start: 20030303, end: 20041103
  2. FOLIC ACID [Concomitant]
  3. METHOTREXATE [Concomitant]
  4. PHENYTOIN SODIUM CAP [Concomitant]
  5. MELOXICAM [Concomitant]
  6. CYCLOSPORINE [Concomitant]

REACTIONS (1)
  - COLON CANCER METASTATIC [None]
